FAERS Safety Report 10231334 (Version 1)
Quarter: 2014Q2

REPORT INFORMATION
  Report Type: Spontaneous
  Country: US (occurrence: US)
  Receive Date: 20140611
  Receipt Date: 20140611
  Transmission Date: 20141212
  Serious: Yes (Other)
  Sender: FDA-Public Use
  Company Number: US-LUNDBECK-DKLU1100791

PATIENT
  Sex: Female
  Weight: 33 kg

DRUGS (6)
  1. ONFI [Suspect]
     Indication: CONVULSION
     Route: 048
     Dates: start: 201404
  2. LAMOTRIGINE [Suspect]
     Indication: GENERALISED TONIC-CLONIC SEIZURE
     Route: 048
     Dates: start: 201312
  3. LAMOTRIGINE [Suspect]
     Route: 048
     Dates: start: 201312
  4. LAMOTRIGINE [Suspect]
     Route: 048
     Dates: start: 201312
  5. TRILEPTAL [Suspect]
     Indication: CONVULSION
  6. VIMPAT [Suspect]
     Indication: CONVULSION
     Dates: start: 201405

REACTIONS (7)
  - Convulsion [Not Recovered/Not Resolved]
  - Partial seizures [Not Recovered/Not Resolved]
  - Cognitive disorder [Not Recovered/Not Resolved]
  - Vision blurred [Not Recovered/Not Resolved]
  - Mood altered [Not Recovered/Not Resolved]
  - Fatigue [Not Recovered/Not Resolved]
  - Drug ineffective [Not Recovered/Not Resolved]
